FAERS Safety Report 8843918 (Version 1)
Quarter: 2012Q4

REPORT INFORMATION
  Report Type: 
  Country: US (occurrence: US)
  Receive Date: 20121017
  Receipt Date: 20121017
  Transmission Date: 20130627
  Serious: No
  Sender: FDA-Public Use
  Company Number: US-009507513-1210USA006168

PATIENT
  Age: 54 Year
  Sex: Male
  Weight: 85.71 kg

DRUGS (2)
  1. VICTRELIS [Suspect]
     Indication: HEPATITIS C
     Dosage: 200 mg, q8h
     Route: 048
     Dates: start: 20120808
  2. PEGASYS [Suspect]

REACTIONS (6)
  - Headache [Recovering/Resolving]
  - Pyrexia [Recovering/Resolving]
  - Influenza [Recovering/Resolving]
  - Diarrhoea [Recovering/Resolving]
  - Nausea [Recovering/Resolving]
  - Fatigue [Recovering/Resolving]
